FAERS Safety Report 8268366-2 (Version None)
Quarter: 2012Q2

REPORT INFORMATION
  Report Type: 
  Country: None (occurrence: None)
  Receive Date: 20120409
  Receipt Date: 20120329
  Transmission Date: 20120825
  Serious: Yes (Hospitalization)
  Sender: FDA-Public Use
  Company Number: NL-JNJFOC-20120400955

PATIENT

DRUGS (1)
  1. REMICADE [Suspect]
     Indication: SPONDYLOARTHROPATHY
     Route: 042
     Dates: start: 20120310

REACTIONS (7)
  - BLOOD COUNT ABNORMAL [None]
  - FATIGUE [None]
  - VOMITING [None]
  - PAIN [None]
  - TUBERCULOSIS [None]
  - INSOMNIA [None]
  - OXYGEN SATURATION DECREASED [None]
